FAERS Safety Report 18600229 (Version 1)
Quarter: 2020Q4

REPORT INFORMATION
  Report Type: Spontaneous
  Country: US (occurrence: US)
  Receive Date: 20201210
  Receipt Date: 20201210
  Transmission Date: 20210114
  Serious: Yes (Other)
  Sender: FDA-Public Use
  Company Number: US-BAYER-2020-271725

PATIENT
  Age: 31 Year
  Sex: Female

DRUGS (1)
  1. KYLEENA [Suspect]
     Active Substance: LEVONORGESTREL
     Indication: CONTRACEPTION
     Dosage: 17.5 ?G PER DAY CONTIUOUSLY
     Route: 015
     Dates: start: 20200512, end: 20201008

REACTIONS (3)
  - Embedded device [None]
  - Abdominal pain lower [None]
  - Medical device pain [None]

NARRATIVE: CASE EVENT DATE: 20201008
